FAERS Safety Report 6220683-3 (Version None)
Quarter: 2009Q2

REPORT INFORMATION
  Report Type: 
  Country: None (occurrence: None)
  Receive Date: 20090610
  Receipt Date: 20090603
  Transmission Date: 20091009
  Serious: Yes (Hospitalization)
  Sender: FDA-Public Use
  Company Number: AU-ROCHE-636074

PATIENT
  Sex: Female

DRUGS (3)
  1. CAPECITABINE [Suspect]
     Indication: DRUG USE FOR UNKNOWN INDICATION
     Dosage: SECOND DOSE
     Route: 065
  2. EPIRUBICIN HYDROCHLORIDE [Suspect]
     Indication: DRUG USE FOR UNKNOWN INDICATION
     Dosage: SECOND DOSE
     Route: 065
  3. OXALIPLATIN [Suspect]
     Indication: DRUG USE FOR UNKNOWN INDICATION
     Dosage: ROUTE: INTRAVEOUS INFUSION FREQUENCY: CYCLICAL
     Route: 042
     Dates: start: 20090414, end: 20090414

REACTIONS (4)
  - MUSCLE SPASMS [None]
  - PARAESTHESIA [None]
  - SPEECH DISORDER [None]
  - SWOLLEN TONGUE [None]
